FAERS Safety Report 8115379-7 (Version None)
Quarter: 2012Q1

REPORT INFORMATION
  Report Type: 
  Country: None (occurrence: None)
  Receive Date: 20120206
  Receipt Date: 20120206
  Transmission Date: 20120608
  Serious: Yes (Other)
  Sender: FDA-Public Use
  Company Number: None

PATIENT
  Age: 56 Year
  Sex: Female

DRUGS (1)
  1. ATORVASTATIN [Suspect]
     Route: 048
     Dates: start: 20111221, end: 20120204

REACTIONS (3)
  - INFLUENZA [None]
  - MYALGIA [None]
  - PRODUCT SUBSTITUTION ISSUE [None]
